FAERS Safety Report 4753994-9 (Version None)
Quarter: 2005Q3

REPORT INFORMATION
  Report Type: 
  Country: None (occurrence: None)
  Receive Date: 20050826
  Receipt Date: 20050310
  Transmission Date: 20060218
  Serious: Yes (Hospitalization, Other)
  Sender: FDA-Public Use
  Company Number: US-MERCK-0503USA02222

PATIENT
  Age: 51 Year
  Sex: Male
  Weight: 138 kg

DRUGS (24)
  1. VIOXX [Suspect]
     Indication: BENIGN NEOPLASM
     Route: 048
     Dates: start: 19980601, end: 20040901
  2. VIOXX [Suspect]
     Route: 048
     Dates: start: 19980601, end: 20040901
  3. VIOXX [Suspect]
     Indication: SPONDYLITIS
     Route: 048
     Dates: start: 19980601, end: 20040901
  4. VIOXX [Suspect]
     Route: 048
     Dates: start: 19980601, end: 20040901
  5. CELEBREX [Concomitant]
     Route: 065
  6. TYLENOL W/ CODEINE NO. 3 [Concomitant]
     Route: 065
  7. NAPROXEN [Concomitant]
     Route: 065
  8. MAXZIDE [Concomitant]
     Indication: HYPERTENSION
     Route: 065
  9. LASIX [Concomitant]
     Route: 065
  10. LISINOPRIL [Concomitant]
     Indication: HYPERTENSION
     Route: 065
  11. LISINOPRIL [Concomitant]
     Route: 065
  12. ZYRTEC [Concomitant]
     Route: 065
  13. CELEXA [Concomitant]
     Route: 065
  14. PRILOSEC [Concomitant]
     Indication: GASTROOESOPHAGEAL REFLUX DISEASE
     Route: 065
  15. SIMVASTATIN [Concomitant]
     Indication: BLOOD CHOLESTEROL INCREASED
     Route: 065
  16. RISPERIDONE [Concomitant]
     Indication: POST-TRAUMATIC STRESS DISORDER
     Route: 065
  17. TRAZODONE HYDROCHLORIDE [Concomitant]
     Route: 065
  18. TESTRED [Concomitant]
     Indication: PROSTATE CANCER
     Route: 065
  19. NEURONTIN [Concomitant]
     Route: 065
  20. KLONOPIN [Concomitant]
     Route: 065
  21. QUETIAPINE FUMARATE [Concomitant]
     Route: 065
  22. MEVACOR [Concomitant]
     Route: 048
  23. IMDUR [Concomitant]
     Route: 065
  24. ACIPHEX [Concomitant]
     Route: 065

REACTIONS (25)
  - ABDOMINAL PAIN [None]
  - ACUTE MYOCARDIAL INFARCTION [None]
  - BLOOD PRESSURE SYSTOLIC INCREASED [None]
  - CARDIAC FAILURE CONGESTIVE [None]
  - CARPAL TUNNEL SYNDROME [None]
  - CHEST PAIN [None]
  - CHRONIC OBSTRUCTIVE PULMONARY DISEASE [None]
  - CORONARY ARTERY DISEASE [None]
  - DIZZINESS [None]
  - DYSKINESIA [None]
  - DYSPNOEA [None]
  - DYSPNOEA PAROXYSMAL NOCTURNAL [None]
  - EMOTIONAL DISTRESS [None]
  - GASTRITIS [None]
  - ISCHAEMIA [None]
  - LIMB DISCOMFORT [None]
  - ORTHOPNOEA [None]
  - OSTEOPENIA [None]
  - PNEUMONIA [None]
  - PROSTATE CANCER RECURRENT [None]
  - RESPIRATORY DISTRESS [None]
  - SLEEP APNOEA SYNDROME [None]
  - SNORING [None]
  - SWELLING [None]
  - WEIGHT INCREASED [None]
